FAERS Safety Report 5323840-3 (Version None)
Quarter: 2007Q2

REPORT INFORMATION
  Report Type: 
  Country: None (occurrence: None)
  Receive Date: 20070514
  Receipt Date: 20070503
  Transmission Date: 20071010
  Serious: Yes (Hospitalization)
  Sender: FDA-Public Use
  Company Number: B0470418A

PATIENT
  Age: 3 Day
  Sex: Male
  Weight: 3.9 kg

DRUGS (2)
  1. TRIZIVIR [Suspect]
     Indication: ANTIVIRAL PROPHYLAXIS
     Dosage: 1TAB TWICE PER DAY
     Route: 048
     Dates: start: 20070117
  2. AZT [Concomitant]
     Dosage: 1.55ML PER DAY

REACTIONS (3)
  - BLOOD BICARBONATE DECREASED [None]
  - JAUNDICE NEONATAL [None]
  - METABOLIC ACIDOSIS [None]
